FAERS Safety Report 4965139-0 (Version None)
Quarter: 2006Q1

REPORT INFORMATION
  Report Type: 
  Country: None (occurrence: None)
  Receive Date: 20060207
  Receipt Date: 20050408
  Transmission Date: 20060701
  Serious: Yes (Other)
  Sender: FDA-Public Use
  Company Number: HQWYE972411APR05

PATIENT
  Age: 17 Year
  Sex: Female
  Weight: 72.64 kg

DRUGS (1)
  1. NORPLANT SYSTEM [Suspect]
     Indication: CONTRACEPTION
     Dosage: 6 CAPSULES, SUBCUTANEOUS
     Route: 058
     Dates: start: 19970901, end: 19990101

REACTIONS (4)
  - ANAEMIA [None]
  - BENIGN BREAST NEOPLASM [None]
  - MENOMETRORRHAGIA [None]
  - OVARIAN CYST [None]
